FAERS Safety Report 10028230 (Version 1)
Quarter: 2014Q1

REPORT INFORMATION
  Report Type: Report from Study
  Country: US (occurrence: None)
  Receive Date: 20140307
  Receipt Date: 20140307
  Transmission Date: 20141002
  Serious: Yes (Death)
  Sender: FDA-Public Use
  Company Number: 1403-0452

PATIENT
  Age: 89 Year
  Sex: 0

DRUGS (1)
  1. EYLEA [Suspect]
     Dates: start: 20120227, end: 20130212

REACTIONS (1)
  - Death [None]
